FAERS Safety Report 8265751-X (Version None)
Quarter: 2012Q2

REPORT INFORMATION
  Report Type: 
  Country: None (occurrence: None)
  Receive Date: 20120406
  Receipt Date: 20120329
  Transmission Date: 20120825
  Serious: Yes (Life-Threatening)
  Sender: FDA-Public Use
  Company Number: GB-TEVA-331049ISR

PATIENT
  Age: 67 Year
  Sex: Female

DRUGS (9)
  1. CLOPIDOGREL [Concomitant]
  2. METHOTREXATE [Suspect]
  3. BENDROFLUMETHIAZIDE [Concomitant]
  4. LISINOPRIL [Concomitant]
  5. ATENOLOL [Concomitant]
  6. FOLIC ACID [Concomitant]
  7. ATORVASTATIN [Concomitant]
  8. LANSOPRAZOLE [Concomitant]
  9. DOXAZOSIN MESYLATE [Concomitant]

REACTIONS (1)
  - BASAL CELL CARCINOMA [None]
